FAERS Safety Report 10021426 (Version 1)
Quarter: 2014Q1

REPORT INFORMATION
  Report Type: Spontaneous
  Country: US (occurrence: None)
  Receive Date: 20140318
  Receipt Date: 20140318
  Transmission Date: 20141002
  Serious: Yes (Other)
  Sender: FDA-Public Use
  Company Number: None

PATIENT
  Sex: 0

DRUGS (1)
  1. XOLAIR 150MG GENENTECH [Suspect]
     Dosage: LOT# 592109, 590423

REACTIONS (1)
  - Product packaging quantity issue [None]
